FAERS Safety Report 11720425 (Version 1)
Quarter: 2015Q4

REPORT INFORMATION
  Report Type: Spontaneous
  Country: BE (occurrence: BE)
  Receive Date: 20151110
  Receipt Date: 20151110
  Transmission Date: 20160304
  Serious: Yes (Life-Threatening, Hospitalization)
  Sender: FDA-Public Use
  Company Number: BE-PFIZER INC-2015371463

PATIENT
  Age: 87 Year
  Sex: Female
  Weight: 61 kg

DRUGS (8)
  1. EFFEXOR XR [Suspect]
     Active Substance: VENLAFAXINE HYDROCHLORIDE
     Dosage: 75 MG, 1X/DAY
     Route: 048
  2. PROLOPA [Concomitant]
     Active Substance: BENSERAZIDE\LEVODOPA
     Dosage: 250 MG, 3X/DAY
     Route: 048
  3. CORDARONE [Suspect]
     Active Substance: AMIODARONE HYDROCHLORIDE
     Indication: AORTIC STENOSIS
     Dosage: 200 MG, DAILY
     Route: 048
  4. ISOTEN [Concomitant]
     Dosage: 2.5 MG, DAILY
     Route: 048
  5. PROLOPA HBS [Concomitant]
     Active Substance: BENSERAZIDE\LEVODOPA
     Dosage: 125 MG, DAILY
     Route: 048
  6. ZITHROMAX [Suspect]
     Active Substance: AZITHROMYCIN DIHYDRATE
     Dosage: 500 MG, 3X/DAY
     Route: 048
     Dates: start: 20151002, end: 201510
  7. MIRAPEXIN [Concomitant]
     Active Substance: PRAMIPEXOLE
     Dosage: 0.18 MG, DAILY
  8. PANTOMED [Concomitant]
     Active Substance: DEXPANTHENOL
     Dosage: 40 MG, DAILY
     Route: 048

REACTIONS (1)
  - Torsade de pointes [Recovered/Resolved]

NARRATIVE: CASE EVENT DATE: 20151007
